FAERS Safety Report 7742339-8 (Version None)
Quarter: 2011Q3

REPORT INFORMATION
  Report Type: 
  Country: None (occurrence: None)
  Receive Date: 20110829
  Receipt Date: 20110816
  Transmission Date: 20111222
  Serious: Yes (Hospitalization, Other)
  Sender: FDA-Public Use
  Company Number: 2010SP063660

PATIENT
  Age: 44 Year
  Sex: Female
  Weight: 102.5129 kg

DRUGS (5)
  1. NUVARING [Suspect]
     Indication: MENSTRUAL CYCLE MANAGEMENT
     Dosage: QM
     Dates: start: 20040901, end: 20061001
  2. NUVARING [Suspect]
     Indication: CONTRACEPTION
     Dosage: QM
     Dates: start: 20040901, end: 20061001
  3. NUVARING [Suspect]
     Indication: MENSTRUAL CYCLE MANAGEMENT
     Dosage: QM
     Dates: start: 20070601, end: 20081201
  4. NUVARING [Suspect]
     Indication: CONTRACEPTION
     Dosage: QM
     Dates: start: 20070601, end: 20081201
  5. SYMBICORT [Concomitant]

REACTIONS (32)
  - EMOTIONAL DISORDER [None]
  - DIZZINESS [None]
  - ANTIPHOSPHOLIPID ANTIBODIES POSITIVE [None]
  - HYPERSENSITIVITY [None]
  - FIBRIN D DIMER INCREASED [None]
  - NAUSEA [None]
  - FIBROADENOMA OF BREAST [None]
  - HYPOXIA [None]
  - HYPERGLYCAEMIA [None]
  - GASTROOESOPHAGEAL REFLUX DISEASE [None]
  - OBESITY [None]
  - UTERINE DILATION AND CURETTAGE [None]
  - DEEP VEIN THROMBOSIS [None]
  - PULMONARY EMBOLISM [None]
  - TACHYCARDIA [None]
  - COLD SWEAT [None]
  - LYMPHADENOPATHY MEDIASTINAL [None]
  - MULTIPLE INJURIES [None]
  - PANIC ATTACK [None]
  - INSOMNIA [None]
  - MENTAL DISORDER [None]
  - ASTHMA [None]
  - BLOOD CHOLESTEROL INCREASED [None]
  - SYNCOPE [None]
  - HYPERHIDROSIS [None]
  - GOITRE [None]
  - PHLEBITIS [None]
  - HYPERTENSION [None]
  - MALAISE [None]
  - DEPRESSION [None]
  - APPENDICECTOMY [None]
  - CHOLECYSTECTOMY [None]
